FAERS Safety Report 9113318 (Version 3)
Quarter: 2013Q3

REPORT INFORMATION
  Report Type: Spontaneous
  Country: US (occurrence: US)
  Receive Date: 20130211
  Receipt Date: 20130928
  Transmission Date: 20140515
  Serious: Yes (Hospitalization, Other)
  Sender: FDA-Public Use
  Company Number: US-BAYER-2013-017675

PATIENT
  Age: 29 Year
  Sex: Female
  Weight: 53.52 kg

DRUGS (8)
  1. YAZ [Suspect]
     Indication: PREMENSTRUAL SYNDROME
     Dosage: UNK
     Dates: start: 200903, end: 200908
  2. YAZ [Suspect]
     Indication: ACNE
  3. ADDERALL [Concomitant]
     Dosage: 30 MG, UNK
     Dates: start: 2003, end: 2013
  4. SONATA [Concomitant]
     Dosage: 10 MG, UNK
     Dates: start: 2003, end: 2013
  5. HYDROXYZINE HCL [Concomitant]
     Indication: RASH
     Dosage: 25 MG, UNK
  6. POTASSIUM [POTASSIUM] [Concomitant]
     Dosage: UNK
     Dates: start: 2009
  7. MOTRIN [Concomitant]
     Dosage: UNK
     Dates: start: 2003, end: 2013
  8. MULTIVITAMIN [Concomitant]

REACTIONS (17)
  - Deep vein thrombosis [None]
  - Deep vein thrombosis [None]
  - Injury [None]
  - Pain [None]
  - General physical health deterioration [None]
  - Anxiety [None]
  - Emotional distress [None]
  - Pain [None]
  - Renal colic [None]
  - Vitamin B12 deficiency [None]
  - Muscle atrophy [None]
  - Neuropathy peripheral [None]
  - Post thrombotic syndrome [None]
  - Depression [None]
  - Insomnia [None]
  - Mental disorder [None]
  - Muscle rupture [None]
